FAERS Safety Report 6928687-X (Version None)
Quarter: 2010Q3

REPORT INFORMATION
  Report Type: 
  Country: None (occurrence: None)
  Receive Date: 20100817
  Receipt Date: 20100810
  Transmission Date: 20110219
  Serious: Yes (Hospitalization)
  Sender: FDA-Public Use
  Company Number: A0874900A

PATIENT
  Sex: Female

DRUGS (6)
  1. ADVAIR DISKUS 100/50 [Suspect]
     Indication: CHRONIC OBSTRUCTIVE PULMONARY DISEASE
     Dosage: 1PUFF TWICE PER DAY
     Route: 055
  2. SPIRIVA [Concomitant]
  3. VENTOLIN [Concomitant]
  4. PAIN MEDICATION [Concomitant]
     Indication: BACK PAIN
  5. NAUSEA MEDICATION (UNKNOWN) [Concomitant]
  6. OXYGEN [Concomitant]

REACTIONS (2)
  - BACK DISORDER [None]
  - DYSPNOEA [None]
